FAERS Safety Report 9066825 (Version 1)
Quarter: 2013Q1

REPORT INFORMATION
  Report Type: Report from Study
  Country: IT (occurrence: IT)
  Receive Date: 20130214
  Receipt Date: 20130214
  Transmission Date: 20140127
  Serious: Yes (Disabling)
  Sender: FDA-Public Use
  Company Number: IT-GLAXOSMITHKLINE-B0866655A

PATIENT
  Age: 72 None
  Sex: Female
  Weight: 74 kg

DRUGS (7)
  1. ELTROMBOPAG [Suspect]
     Indication: AUTOIMMUNE THROMBOCYTOPENIA
     Dosage: 125MG PER DAY
     Route: 048
     Dates: start: 20120905, end: 20121026
  2. PREDNISOLONE [Concomitant]
     Indication: THROMBOCYTOPENIA
     Route: 048
     Dates: start: 20120905, end: 20121119
  3. LANSOPRAZOLE [Concomitant]
     Indication: ABDOMINAL PAIN UPPER
     Route: 048
  4. ATENOLOLO + CLORTALIDONE [Concomitant]
     Indication: HYPERTENSION
     Route: 048
  5. VITAMINS [Concomitant]
     Indication: ANAEMIA
     Route: 048
     Dates: start: 20120824, end: 20121002
  6. RED BLOOD CELL TRANSFUSION [Concomitant]
     Indication: ANAEMIA
  7. ERYTHROPOIETIN [Concomitant]
     Indication: ANAEMIA
     Dosage: 10000UNIT PER DAY
     Dates: start: 20130123

REACTIONS (1)
  - Refractory anaemia with an excess of blasts [Recovered/Resolved with Sequelae]
